FAERS Safety Report 9704196 (Version 1)
Quarter: 2013Q4

REPORT INFORMATION
  Report Type: Spontaneous
  Country: US (occurrence: US)
  Receive Date: 20131122
  Receipt Date: 20131122
  Transmission Date: 20140711
  Serious: Yes (Hospitalization)
  Sender: FDA-Public Use
  Company Number: US-SA-2013SA120843

PATIENT
  Age: 64 Year
  Sex: Female

DRUGS (3)
  1. LANTUS SOLOSTAR [Suspect]
     Indication: TYPE 2 DIABETES MELLITUS
     Dosage: DOSE: 25 UNITS/60 UNITS.?TAKEN FROM: 1 YEAR.
     Route: 051
  2. NOVOLOG [Suspect]
     Indication: DIABETES MELLITUS
     Route: 065
  3. SOLOSTAR [Concomitant]

REACTIONS (8)
  - Arthropathy [Unknown]
  - Pain [Unknown]
  - Hypoglycaemia [Unknown]
  - Overdose [Unknown]
  - Hyperhidrosis [Unknown]
  - Pallor [Unknown]
  - Ill-defined disorder [Unknown]
  - Back pain [Unknown]
